FAERS Safety Report 25535411 (Version 1)
Quarter: 2025Q3

REPORT INFORMATION
  Report Type: Spontaneous
  Country: US (occurrence: US)
  Receive Date: 20250709
  Receipt Date: 20250709
  Transmission Date: 20251020
  Serious: No
  Sender: ROCHE
  Company Number: US-ROCHE-10000330189

PATIENT
  Age: 27 Year
  Sex: Male

DRUGS (1)
  1. HEMLIBRA [Suspect]
     Active Substance: EMICIZUMAB-KXWH
     Indication: Factor VIII deficiency
     Route: 058
     Dates: start: 20250613

REACTIONS (3)
  - Headache [Recovered/Resolved]
  - Back pain [Unknown]
  - Neck pain [Unknown]

NARRATIVE: CASE EVENT DATE: 20250613
